FAERS Safety Report 16721712 (Version 2)
Quarter: 2020Q4

REPORT INFORMATION
  Report Type: Report from Study
  Country: US (occurrence: US)
  Receive Date: 20190820
  Receipt Date: 20201123
  Transmission Date: 20210113
  Serious: Yes (Other)
  Sender: FDA-Public Use
  Company Number: US-ALEXION PHARMACEUTICALS INC.-A201912351

PATIENT
  Sex: Female

DRUGS (1)
  1. SOLIRIS [Suspect]
     Active Substance: ECULIZUMAB
     Indication: ATYPICAL HAEMOLYTIC URAEMIC SYNDROME
     Dosage: UNK
     Route: 065

REACTIONS (6)
  - Systemic lupus erythematosus [Unknown]
  - Nodule [Unknown]
  - Platelet count decreased [Unknown]
  - Blood lactic acid decreased [Unknown]
  - Road traffic accident [Unknown]
  - Rash [Unknown]

NARRATIVE: CASE EVENT DATE: 202011
